FAERS Safety Report 8582389-5 (Version None)
Quarter: 2012Q3

REPORT INFORMATION
  Report Type: 
  Country: None (occurrence: None)
  Receive Date: 20120809
  Receipt Date: 20120726
  Transmission Date: 20120928
  Serious: Yes (Hospitalization)
  Sender: FDA-Public Use
  Company Number: US-GLAXOSMITHKLINE-A0981550A

PATIENT
  Age: 69 Year
  Sex: Female

DRUGS (12)
  1. NEXIUM [Concomitant]
  2. SINGULAIR [Concomitant]
  3. SPIRIVA [Concomitant]
  4. ENALAPRIL MALEATE [Concomitant]
  5. IMDUR [Concomitant]
  6. OXYGEN [Concomitant]
  7. FLUTICASONE PROPIONATE [Suspect]
     Indication: CHRONIC OBSTRUCTIVE PULMONARY DISEASE
     Dosage: 1PUFF TWICE PER DAY
     Route: 055
     Dates: start: 20111012
  8. FLUTICASONE PROPIONATE [Concomitant]
  9. GLIPIZIDE [Concomitant]
  10. ALLOPURINOL [Concomitant]
  11. ASPIRIN [Concomitant]
  12. DILTIAZEM [Concomitant]

REACTIONS (3)
  - SINUSITIS [None]
  - PNEUMONIA [None]
  - BRONCHITIS [None]
